FAERS Safety Report 6111732-1 (Version None)
Quarter: 2009Q1

REPORT INFORMATION
  Report Type: 
  Country: None (occurrence: None)
  Receive Date: 20090311
  Receipt Date: 20090225
  Transmission Date: 20090719
  Serious: Yes (Disabling, Other)
  Sender: FDA-Public Use
  Company Number: US-BAYER-200825660NA

PATIENT
  Age: 62 Year
  Sex: Female

DRUGS (5)
  1. MAGNEVIST [Suspect]
     Indication: NUCLEAR MAGNETIC RESONANCE IMAGING
     Dates: start: 20040225, end: 20040225
  2. MAGNEVIST [Suspect]
     Dates: start: 20060606, end: 20060606
  3. MAGNEVIST [Suspect]
     Dates: start: 20060718, end: 20060718
  4. MAGNEVIST [Suspect]
     Dates: start: 20060829, end: 20060829
  5. MAGNEVIST [Suspect]
     Dates: start: 20061128, end: 20061128

REACTIONS (11)
  - ANXIETY [None]
  - EMOTIONAL DISTRESS [None]
  - FIBROSIS [None]
  - GENERAL PHYSICAL HEALTH DETERIORATION [None]
  - INJURY [None]
  - MOBILITY DECREASED [None]
  - NEPHROGENIC SYSTEMIC FIBROSIS [None]
  - PAIN [None]
  - QUALITY OF LIFE DECREASED [None]
  - SCAR [None]
  - SKIN FIBROSIS [None]
